FAERS Safety Report 5734246-7 (Version None)
Quarter: 2008Q2

REPORT INFORMATION
  Report Type: 
  Country: None (occurrence: None)
  Receive Date: 20080512
  Receipt Date: 20080501
  Transmission Date: 20081010
  Serious: Yes (Death, Hospitalization)
  Sender: FDA-Public Use
  Company Number: US-JNJFOC-20070106189

PATIENT
  Sex: Male
  Weight: 60 kg

DRUGS (2)
  1. DOXIL [Suspect]
     Route: 042
  2. DOXIL [Suspect]
     Indication: MEDULLARY THYROID CANCER
     Route: 042

REACTIONS (2)
  - OFF LABEL USE [None]
  - THYROID CANCER [None]
